FAERS Safety Report 17005880 (Version 1)
Quarter: 2019Q4

REPORT INFORMATION
  Report Type: Spontaneous
  Country: US (occurrence: US)
  Receive Date: 20191107
  Receipt Date: 20191107
  Transmission Date: 20200122
  Serious: Yes (Hospitalization)
  Sender: FDA-Public Use
  Company Number: US-JNJFOC-20191046702

PATIENT
  Age: 42 Year
  Sex: Male

DRUGS (2)
  1. ALCOHOL. [Suspect]
     Active Substance: ALCOHOL
     Indication: PRODUCT USED FOR UNKNOWN INDICATION
     Route: 048
  2. PARACETAMOL [Suspect]
     Active Substance: ACETAMINOPHEN
     Indication: PRODUCT USED FOR UNKNOWN INDICATION
     Dosage: INGESTION OF APPROXIMATELY 27G ACETAMINOPHEN
     Route: 048

REACTIONS (5)
  - Overdose [Unknown]
  - Renal injury [Recovered/Resolved]
  - Product administration error [Unknown]
  - Liver injury [Recovered/Resolved]
  - Haemolysis [Recovering/Resolving]
